FAERS Safety Report 5328703-5 (Version None)
Quarter: 2007Q2

REPORT INFORMATION
  Report Type: 
  Country: None (occurrence: None)
  Receive Date: 20070518
  Receipt Date: 20070516
  Transmission Date: 20071010
  Serious: Yes (Other)
  Sender: FDA-Public Use
  Company Number: B0471299A

PATIENT
  Age: 47 Year
  Sex: Female

DRUGS (2)
  1. ARIXTRA [Suspect]
     Route: 065
  2. GENERAL ANESTHESIA [Concomitant]
     Route: 065

REACTIONS (2)
  - DRUG INEFFECTIVE [None]
  - THROMBOSIS [None]
